FAERS Safety Report 13571936 (Version 2)
Quarter: 2017Q4

REPORT INFORMATION
  Report Type: Spontaneous
  Country: FR (occurrence: FR)
  Receive Date: 20170523
  Receipt Date: 20171101
  Transmission Date: 20180320
  Serious: Yes (Hospitalization, Other)
  Sender: FDA-Public Use
  Company Number: FR-ZYDUS-015172

PATIENT
  Age: 26 Year
  Sex: Male

DRUGS (2)
  1. ACICLOVIR [Suspect]
     Active Substance: ACYCLOVIR
     Indication: HERPES VIRUS INFECTION
     Route: 065
     Dates: start: 201603, end: 2016
  2. LUMACAFTOR/IVACAFTOR [Interacting]
     Active Substance: IVACAFTOR\LUMACAFTOR
     Indication: CYSTIC FIBROSIS
     Route: 065
     Dates: start: 20160203, end: 2016

REACTIONS (9)
  - Condition aggravated [Recovered/Resolved]
  - Alanine aminotransferase increased [Unknown]
  - Rhabdomyolysis [Recovering/Resolving]
  - Blood creatine phosphokinase increased [Recovered/Resolved]
  - Aspartate aminotransferase increased [Unknown]
  - Myalgia [Not Recovered/Not Resolved]
  - Drug interaction [Recovering/Resolving]
  - Chromaturia [Unknown]
  - Muscle oedema [Unknown]

NARRATIVE: CASE EVENT DATE: 201603
